FAERS Safety Report 9628473 (Version 1)
Quarter: 2013Q4

REPORT INFORMATION
  Report Type: Spontaneous
  Country: US (occurrence: US)
  Receive Date: 20131017
  Receipt Date: 20131017
  Transmission Date: 20140711
  Serious: No
  Sender: FDA-Public Use
  Company Number: US-PFIZER INC-2013294992

PATIENT
  Sex: Female
  Weight: 67.1 kg

DRUGS (3)
  1. LEVOXYL [Suspect]
     Indication: HYPOTHYROIDISM
     Dosage: 0.075 UG, 1X/DAY
     Dates: end: 201309
  2. LEVOTHYROXINE SODIUM [Suspect]
     Indication: HYPOTHYROIDISM
     Dosage: 0.075 UG, 1X/DAY
     Dates: start: 2013, end: 2013
  3. SYNTHROID [Suspect]
     Indication: HYPOTHYROIDISM
     Dosage: 0.075 UG, 1X/DAY
     Dates: start: 2013

REACTIONS (4)
  - Dyspnoea [Not Recovered/Not Resolved]
  - Chest discomfort [Not Recovered/Not Resolved]
  - Heart rate increased [Unknown]
  - Drug ineffective [Unknown]
